FAERS Safety Report 6434807-6 (Version None)
Quarter: 2009Q4

REPORT INFORMATION
  Report Type: 
  Country: None (occurrence: None)
  Receive Date: 20091109
  Receipt Date: 20091109
  Transmission Date: 20100525
  Serious: Yes (Other)
  Sender: FDA-Public Use
  Company Number: None

PATIENT
  Age: 1 Day
  Sex: Female
  Weight: 3.2 kg

DRUGS (2)
  1. GENTAK [Suspect]
     Indication: INFECTION PROPHYLAXIS
     Dosage: 1/4 INCH RIBBON ONE TIME OPHTHALMIC
     Route: 047
     Dates: start: 20091103, end: 20091103
  2. PHYTONADIONE [Concomitant]

REACTIONS (6)
  - CELLULITIS [None]
  - DERMATITIS [None]
  - ERYTHEMA [None]
  - EXCORIATION [None]
  - EYE DISCHARGE [None]
  - SKIN IRRITATION [None]
